FAERS Safety Report 16652453 (Version 1)
Quarter: 2019Q3

REPORT INFORMATION
  Report Type: Spontaneous
  Country: GB (occurrence: GB)
  Receive Date: 20190731
  Receipt Date: 20190731
  Transmission Date: 20191004
  Serious: Yes (Other)
  Sender: FDA-Public Use
  Company Number: GB-PFIZER INC-2019318697

PATIENT
  Age: 63 Year
  Sex: Male
  Weight: 76.2 kg

DRUGS (4)
  1. ATORVASTATIN CALCIUM. [Suspect]
     Active Substance: ATORVASTATIN CALCIUM
     Indication: BLOOD CHOLESTEROL INCREASED
     Dosage: 1 DF, 1X/DAY
     Route: 048
     Dates: start: 20190612, end: 20190625
  2. LISINOPRIL DIHYDRATE [Concomitant]
     Active Substance: LISINOPRIL
     Dosage: UNK
  3. ACETYLSALICYLIC ACID [Concomitant]
     Active Substance: ASPIRIN
     Dosage: UNK
  4. SPIRIVA [Concomitant]
     Active Substance: TIOTROPIUM BROMIDE MONOHYDRATE
     Dosage: UNK

REACTIONS (5)
  - Dysphonia [Not Recovered/Not Resolved]
  - Arthralgia [Not Recovered/Not Resolved]
  - Nasopharyngitis [Unknown]
  - Myalgia [Not Recovered/Not Resolved]
  - Chest pain [Not Recovered/Not Resolved]

NARRATIVE: CASE EVENT DATE: 20190614
